FAERS Safety Report 17830940 (Version 1)
Quarter: 2020Q2

REPORT INFORMATION
  Report Type: Spontaneous
  Country: US (occurrence: US)
  Receive Date: 20200527
  Receipt Date: 20200527
  Transmission Date: 20200714
  Serious: No
  Sender: FDA-Public Use
  Company Number: US-THERAPEUTICSMD-2020TMD01126

PATIENT
  Age: 35 Year
  Sex: Female
  Weight: 63.49 kg

DRUGS (2)
  1. PREVACID [Concomitant]
     Active Substance: LANSOPRAZOLE
  2. ANNOVERA [Suspect]
     Active Substance: ETHINYL ESTRADIOL\SEGESTERONE ACETATE
     Indication: CONTRACEPTION
     Dosage: 1 DOSAGE UNITS LEFT IN FOR 21 DAYS THEN REMOVED FOR 7 DAYS FOR UP TO A YEAR
     Route: 067
     Dates: start: 20200212, end: 20200227

REACTIONS (3)
  - Vaginal discharge [Unknown]
  - Vulvovaginal burning sensation [Unknown]
  - Fungal infection [Unknown]

NARRATIVE: CASE EVENT DATE: 202002
